FAERS Safety Report 10889908 (Version 6)
Quarter: 2016Q1

REPORT INFORMATION
  Report Type: Report from Study
  Country: US (occurrence: US)
  Receive Date: 20150305
  Receipt Date: 20160223
  Transmission Date: 20160525
  Serious: Yes (Hospitalization, Other)
  Sender: FDA-Public Use
  Company Number: PHHY2015US024647

PATIENT
  Age: 49 Year
  Sex: Male
  Weight: 96 kg

DRUGS (23)
  1. TACROLIMUS. [Suspect]
     Active Substance: TACROLIMUS
     Dosage: 6 MG, BID
     Route: 048
     Dates: start: 20131106, end: 20131113
  2. TACROLIMUS. [Suspect]
     Active Substance: TACROLIMUS
     Dosage: 7 MG (04 MG AM AND 03 MG PM), UID/QD
     Route: 048
     Dates: start: 20140212
  3. TACROLIMUS. [Suspect]
     Active Substance: TACROLIMUS
     Dosage: 8 MG, (3 MG AM AND 5 MG PM), DAILY
     Route: 048
     Dates: start: 20131006, end: 20131006
  4. LEFLUNOMIDE. [Concomitant]
     Active Substance: LEFLUNOMIDE
     Indication: PRODUCT USED FOR UNKNOWN INDICATION
     Dosage: UNK
     Route: 065
  5. TACROLIMUS. [Suspect]
     Active Substance: TACROLIMUS
     Dosage: 5 MG, BID
     Route: 048
     Dates: start: 20131007, end: 20131008
  6. TACROLIMUS. [Suspect]
     Active Substance: TACROLIMUS
     Dosage: 2 MG, BID
     Route: 048
     Dates: start: 20131231, end: 20140107
  7. TACROLIMUS. [Suspect]
     Active Substance: TACROLIMUS
     Dosage: 3 MG, BID
     Route: 048
     Dates: start: 20140127, end: 20140211
  8. TACROLIMUS. [Suspect]
     Active Substance: TACROLIMUS
     Indication: IMMUNOSUPPRESSION
     Dosage: 5 MG, (2 MG AM AND 3 MG PM), DAILY
     Route: 048
     Dates: start: 20131005, end: 20131005
  9. TACROLIMUS. [Suspect]
     Active Substance: TACROLIMUS
     Dosage: 7 MG, BID
     Route: 048
     Dates: start: 20131011, end: 20131016
  10. TACROLIMUS. [Suspect]
     Active Substance: TACROLIMUS
     Dosage: 3 MG, BID
     Route: 048
     Dates: start: 20131224, end: 20131230
  11. TACROLIMUS. [Suspect]
     Active Substance: TACROLIMUS
     Dosage: 5 MG (03 MG AM AND 02 MG PM), UID/QD
     Route: 048
     Dates: start: 20140123, end: 20140126
  12. SIMULECT [Suspect]
     Active Substance: BASILIXIMAB
     Indication: RENAL TRANSPLANT
     Dosage: 20 MG, UNK
     Route: 042
     Dates: start: 20131002
  13. TACROLIMUS. [Suspect]
     Active Substance: TACROLIMUS
     Dosage: 7 MG, (4 MG AM AND 3 MG PM), DAILY
     Route: 048
     Dates: start: 20131219, end: 20131223
  14. SIMULECT [Suspect]
     Active Substance: BASILIXIMAB
     Indication: IMMUNOSUPPRESSION
     Dosage: 20 MG, UNK
     Route: 042
     Dates: start: 20131006, end: 20131006
  15. TACROLIMUS. [Suspect]
     Active Substance: TACROLIMUS
     Dosage: 6 MG AM/ 5 MG PM, UID/QD
     Route: 048
     Dates: start: 20131114, end: 20131204
  16. TACROLIMUS. [Suspect]
     Active Substance: TACROLIMUS
     Dosage: 4 MG, BID
     Route: 048
     Dates: start: 20131212, end: 20131218
  17. TACROLIMUS. [Suspect]
     Active Substance: TACROLIMUS
     Dosage: 5 MG (03 MG AM AND 02 MG PM), UID/QD
     Route: 048
     Dates: start: 20140108, end: 20140114
  18. TACROLIMUS. [Suspect]
     Active Substance: TACROLIMUS
     Dosage: 3 MG, BID
     Route: 048
     Dates: start: 20140115, end: 20140122
  19. PREDNISONE. [Concomitant]
     Active Substance: PREDNISONE
     Indication: PRODUCT USED FOR UNKNOWN INDICATION
     Dosage: UNK
     Route: 065
     Dates: start: 20131002
  20. TACROLIMUS. [Suspect]
     Active Substance: TACROLIMUS
     Indication: RENAL TRANSPLANT
     Dosage: 2 MG, QD
     Route: 048
     Dates: start: 20131004, end: 20131004
  21. TACROLIMUS. [Suspect]
     Active Substance: TACROLIMUS
     Dosage: 6 MG, BID
     Route: 048
     Dates: start: 20131009, end: 20131010
  22. TACROLIMUS. [Suspect]
     Active Substance: TACROLIMUS
     Dosage: 13 MG, (7 MG AM AND 6 MG PM), DAILY
     Route: 048
     Dates: start: 20131017, end: 20131105
  23. TACROLIMUS. [Suspect]
     Active Substance: TACROLIMUS
     Dosage: 5 MG, BID
     Route: 048
     Dates: start: 20131205, end: 20131211

REACTIONS (6)
  - Asthenia [Unknown]
  - Fatigue [Unknown]
  - Endocarditis [Recovered/Resolved]
  - Enterococcal bacteraemia [Recovered/Resolved]
  - Immunosuppressant drug level decreased [Not Recovered/Not Resolved]
  - BK virus infection [Recovered/Resolved]

NARRATIVE: CASE EVENT DATE: 20131029
